FAERS Safety Report 5934957-4 (Version None)
Quarter: 2008Q4

REPORT INFORMATION
  Report Type: 
  Country: None (occurrence: None)
  Receive Date: 20081028
  Receipt Date: 20081023
  Transmission Date: 20090506
  Serious: Yes (Hospitalization)
  Sender: FDA-Public Use
  Company Number: 331087

PATIENT
  Sex: Female

DRUGS (1)
  1. LANACANE MAXIMUM STRENGTH ANTI-ITCH  CREAM [Suspect]
     Indication: PRECANCEROUS CELLS PRESENT
     Dosage: TOPICALLY 1 TUBE A WEEK
     Route: 061
     Dates: start: 20080829, end: 20081005

REACTIONS (2)
  - DERMATITIS CONTACT [None]
  - HERPES ZOSTER [None]
